FAERS Safety Report 5734142-5 (Version None)
Quarter: 2008Q2

REPORT INFORMATION
  Report Type: 
  Country: None (occurrence: None)
  Receive Date: 20080509
  Receipt Date: 20080502
  Transmission Date: 20081010
  Serious: Yes (Other)
  Sender: FDA-Public Use
  Company Number: AU-ASTRAZENECA-2008AP03416

PATIENT
  Age: 11504 Day
  Sex: Male

DRUGS (3)
  1. FENTANYL-100 [Suspect]
     Dates: start: 20071101
  2. FRESOFOL [Suspect]
     Dates: start: 20071101
  3. HYPNOVEL [Suspect]

REACTIONS (3)
  - DYSKINESIA [None]
  - EYE ROLLING [None]
  - TONIC CLONIC MOVEMENTS [None]
